FAERS Safety Report 6368513-3 (Version None)
Quarter: 2009Q3

REPORT INFORMATION
  Report Type: 
  Country: None (occurrence: None)
  Receive Date: 20090922
  Receipt Date: 20090916
  Transmission Date: 20100115
  Serious: Yes (Hospitalization, Disabling)
  Sender: FDA-Public Use
  Company Number: B0593072A

PATIENT
  Sex: Female

DRUGS (6)
  1. VALTREX [Suspect]
     Indication: HERPES ZOSTER
     Dosage: 1000MG THREE TIMES PER DAY
     Route: 048
     Dates: start: 20090904, end: 20090906
  2. ADALAT CC [Concomitant]
     Indication: HYPERTENSION
     Dosage: 20MG PER DAY
     Route: 048
  3. ALDACTONE [Concomitant]
     Dosage: 25MG PER DAY
     Route: 048
  4. DIOVAN [Concomitant]
     Indication: HYPERTENSION
     Dosage: 80MG PER DAY
     Route: 048
  5. UNKNOWN DRUG [Concomitant]
     Dosage: .125MG PER DAY
     Route: 048
  6. TAKEPRON [Concomitant]
     Dosage: 15MG PER DAY
     Route: 048

REACTIONS (4)
  - ALTERED STATE OF CONSCIOUSNESS [None]
  - BLOOD CREATININE INCREASED [None]
  - EATING DISORDER [None]
  - RENAL DISORDER [None]
